FAERS Safety Report 8330131-5 (Version None)
Quarter: 2012Q2

REPORT INFORMATION
  Report Type: 
  Country: None (occurrence: None)
  Receive Date: 20120502
  Receipt Date: 20120424
  Transmission Date: 20120825
  Serious: Yes (Other)
  Sender: FDA-Public Use
  Company Number: US-PFIZER INC-2012038579

PATIENT
  Sex: Female

DRUGS (2)
  1. ATORVASTATIN CALCIUM [Suspect]
     Dosage: 80 MG, ONCE A DAY
  2. LIPITOR [Suspect]
     Dosage: UNK

REACTIONS (2)
  - RENAL DISORDER [None]
  - CARDIAC DISORDER [None]
